FAERS Safety Report 7518695-2 (Version None)
Quarter: 2011Q2

REPORT INFORMATION
  Report Type: 
  Country: None (occurrence: None)
  Receive Date: 20110601
  Receipt Date: 20110601
  Transmission Date: 20111010
  Serious: Yes (Life-Threatening)
  Sender: FDA-Public Use
  Company Number: None

PATIENT
  Sex: Female
  Weight: 64.4108 kg

DRUGS (1)
  1. CLINDAMYCIN [Suspect]
     Indication: ARTHROPOD BITE
     Dosage: 1 CAPSULE 3/DAY PO
     Route: 048
     Dates: start: 20110522, end: 20110529

REACTIONS (3)
  - MUCOUS STOOLS [None]
  - HAEMATOCHEZIA [None]
  - RASH GENERALISED [None]
